FAERS Safety Report 10791926 (Version 1)
Quarter: 2015Q1

REPORT INFORMATION
  Report Type: Spontaneous
  Country: CH (occurrence: None)
  Receive Date: 20150211
  Receipt Date: 20150211
  Transmission Date: 20150721
  Serious: Yes (Hospitalization)
  Sender: FDA-Public Use
  Company Number: 20150058

PATIENT
  Age: 19 Year
  Sex: Female

DRUGS (1)
  1. VENOFER [Suspect]
     Active Substance: IRON SUCROSE
     Indication: PRODUCT USED FOR UNKNOWN INDICATION
     Route: 041
     Dates: start: 20141119, end: 20141121

REACTIONS (8)
  - Tachycardia [None]
  - Presyncope [None]
  - Hypotension [None]
  - Back pain [None]
  - Pain in extremity [None]
  - Maternal exposure during pregnancy [None]
  - Caesarean section [None]
  - Sinus bradycardia [None]

NARRATIVE: CASE EVENT DATE: 20141119
